FAERS Safety Report 6301377-2 (Version None)
Quarter: 2009Q3

REPORT INFORMATION
  Report Type: 
  Country: None (occurrence: None)
  Receive Date: 20090807
  Receipt Date: 20090729
  Transmission Date: 20100115
  Serious: Yes (Hospitalization)
  Sender: FDA-Public Use
  Company Number: US-JNJFOC-20090800830

PATIENT
  Age: 78 Year
  Sex: Female
  Weight: 58.97 kg

DRUGS (5)
  1. EXTRA STRENGTH TYLENOL [Suspect]
     Route: 048
  2. EXTRA STRENGTH TYLENOL [Suspect]
     Indication: PAIN
     Route: 048
  3. CHEMOTHERAPY [Suspect]
     Indication: LYMPHOMA
  4. PERCOCET [Concomitant]
     Indication: PAIN
  5. PEPCID [Concomitant]
     Indication: GASTROOESOPHAGEAL REFLUX DISEASE

REACTIONS (2)
  - ERYTHEMA MULTIFORME [None]
  - INSOMNIA [None]
